FAERS Safety Report 24977606 (Version 1)
Quarter: 2025Q1

REPORT INFORMATION
  Report Type: Report from Study
  Country: CL (occurrence: CL)
  Receive Date: 20250217
  Receipt Date: 20250217
  Transmission Date: 20250409
  Serious: Yes (Other)
  Sender: SANDOZ
  Company Number: CL-SANDOZ-SDZ2025CL009280

PATIENT
  Sex: Male

DRUGS (1)
  1. OMNITROPE [Suspect]
     Active Substance: SOMATROPIN
     Indication: Product used for unknown indication
     Dosage: 2 MG, QD
     Route: 058
     Dates: start: 20220919

REACTIONS (1)
  - Spinal cord disorder [Recovered/Resolved]
